FAERS Safety Report 17246823 (Version 21)
Quarter: 2025Q1

REPORT INFORMATION
  Report Type: Spontaneous
  Country: US (occurrence: US)
  Receive Date: 20200108
  Receipt Date: 20250224
  Transmission Date: 20250408
  Serious: No
  Sender: PFIZER
  Company Number: US-PFIZER INC-2016505756

PATIENT
  Age: 55 Year
  Sex: Female
  Weight: 81.65 kg

DRUGS (8)
  1. SOMAVERT [Suspect]
     Active Substance: PEGVISOMANT
     Indication: Acromegaly
     Dates: start: 2004
  2. SOMAVERT [Suspect]
     Active Substance: PEGVISOMANT
     Indication: Gigantism
     Dates: start: 20150126
  3. SOMAVERT [Suspect]
     Active Substance: PEGVISOMANT
     Dosage: 35 MG, 1X/DAY (7 DAYS/WK; 15MG AND 20MG INJECTED ONCE A DAY)
     Dates: start: 20150127
  4. SOMAVERT [Suspect]
     Active Substance: PEGVISOMANT
     Dosage: 35 MG 7X A WEEK
  5. SOMAVERT [Suspect]
     Active Substance: PEGVISOMANT
     Dosage: 35 MG, DAILY (15MG AND A 20MG DAILY)
     Dates: start: 2005
  6. SOMAVERT [Suspect]
     Active Substance: PEGVISOMANT
     Dosage: 35 MG, DAILY
     Dates: start: 20150918
  7. SOMAVERT [Suspect]
     Active Substance: PEGVISOMANT
     Dosage: 20 MG, DAILY
  8. SOMAVERT [Suspect]
     Active Substance: PEGVISOMANT
     Dosage: 15 MG/DAY, 20 MG/DAY. TOTAL DAILY DOSE 35 MG

REACTIONS (6)
  - Constipation [Unknown]
  - Sinusitis [Unknown]
  - Needle issue [Unknown]
  - Product dose omission issue [Unknown]
  - Off label use [Unknown]
  - Prescribed overdose [Unknown]

NARRATIVE: CASE EVENT DATE: 20050101
